FAERS Safety Report 11836555 (Version 1)
Quarter: 2015Q4

REPORT INFORMATION
  Report Type: Spontaneous
  Country: US (occurrence: None)
  Receive Date: 20151214
  Receipt Date: 20151214
  Transmission Date: 20160305
  Serious: No
  Sender: FDA-Public Use
  Company Number: None

PATIENT
  Age: 61 Year
  Sex: Male

DRUGS (1)
  1. HUMIRA [Suspect]
     Active Substance: ADALIMUMAB
     Indication: PSORIASIS
     Dosage: 80MG (2 PENS) ON DAY 1 THEN 40MG (1...
     Route: 058
     Dates: start: 20151009, end: 20151202

REACTIONS (2)
  - Cerebrovascular accident [None]
  - Sinusitis [None]

NARRATIVE: CASE EVENT DATE: 20151202
